FAERS Safety Report 5518158-X (Version None)
Quarter: 2007Q4

REPORT INFORMATION
  Report Type: 
  Country: None (occurrence: None)
  Receive Date: 20071115
  Receipt Date: 20071107
  Transmission Date: 20080405
  Serious: Yes (Disabling)
  Sender: FDA-Public Use
  Company Number: PHBS2007IT18707

PATIENT
  Age: 49 Year
  Sex: Female

DRUGS (3)
  1. ZOMETA [Suspect]
     Indication: OSTEOLYSIS
     Dosage: 4 MG, UNK
     Route: 042
     Dates: start: 20050303, end: 20070803
  2. FASLODEX [Concomitant]
     Indication: BREAST CANCER STAGE IV
     Dosage: 250 MG/5 ML
     Route: 030
  3. CO-EFFERALGAN [Concomitant]
     Route: 048

REACTIONS (3)
  - BONE DEBRIDEMENT [None]
  - OSTEONECROSIS [None]
  - TOOTHACHE [None]
